FAERS Safety Report 8782117 (Version 2)
Quarter: 2012Q4

REPORT INFORMATION
  Report Type: 
  Country: US (occurrence: US)
  Receive Date: 20120913
  Receipt Date: 20121221
  Transmission Date: 20130627
  Serious: No
  Sender: FDA-Public Use
  Company Number: US-VERTEX PHARMACEUTICAL INC.-2012-020070

PATIENT
  Age: 62 Year
  Sex: Male
  Weight: 93 kg

DRUGS (4)
  1. VX-950 (TELAPREVIR) [Suspect]
     Indication: HEPATITIS C
     Dosage: 750 mg, tid
     Route: 048
     Dates: start: 20120801, end: 20121021
  2. RIBASPHERE [Suspect]
     Indication: HEPATITIS C
     Dosage: UNK, qd
     Route: 048
     Dates: start: 20120801
  3. RIBASPHERE [Suspect]
     Dosage: 600 mg, qd
  4. PEG INTRON [Suspect]
     Indication: HEPATITIS C
     Dosage: 180 ?g, qw
     Route: 058
     Dates: start: 20120801

REACTIONS (3)
  - Pyrexia [Unknown]
  - Headache [Unknown]
  - Anaemia [Unknown]
